FAERS Safety Report 8474977-1 (Version None)
Quarter: 2012Q2

REPORT INFORMATION
  Report Type: 
  Country: None (occurrence: None)
  Receive Date: 20120628
  Receipt Date: 20120626
  Transmission Date: 20120825
  Serious: Yes (Other)
  Sender: FDA-Public Use
  Company Number: PHHY2012MX055221

PATIENT
  Sex: Female

DRUGS (1)
  1. EXFORGE [Suspect]
     Indication: HYPERTENSION
     Dosage: 2 DF (160/5 MG), DAILY
     Dates: start: 20100301, end: 20110101

REACTIONS (2)
  - BRONCHOPNEUMONIA [None]
  - BLOOD PRESSURE INADEQUATELY CONTROLLED [None]
